FAERS Safety Report 6983925-2 (Version None)
Quarter: 2010Q3

REPORT INFORMATION
  Report Type: 
  Country: None (occurrence: None)
  Receive Date: 20100914
  Receipt Date: 20090420
  Transmission Date: 20110219
  Serious: No
  Sender: FDA-Public Use
  Company Number: US-WYE-H09029109

PATIENT
  Sex: Male

DRUGS (10)
  1. TORISEL [Suspect]
     Indication: RENAL CELL CARCINOMA
     Dosage: UNKNOWN DOSE ONCE
     Route: 042
     Dates: start: 20080709, end: 20080709
  2. METFORMIN HCL [Concomitant]
  3. METOPROLOL TARTRATE [Concomitant]
  4. ALLOPURINOL [Concomitant]
  5. HYDROCHLOROTHIAZIDE [Concomitant]
  6. COLCHICINE [Concomitant]
  7. ACETYLSALICYLIC ACID [Concomitant]
  8. AMLODIPINE BESYLATE [Concomitant]
  9. PROTONIX [Concomitant]
  10. POTASSIUM [Concomitant]

REACTIONS (1)
  - HYPOTENSION [None]
